FAERS Safety Report 7924167-3 (Version None)
Quarter: 2011Q4

REPORT INFORMATION
  Report Type: 
  Country: None (occurrence: None)
  Receive Date: 20111117
  Receipt Date: 20110215
  Transmission Date: 20120403
  Serious: Yes (Other)
  Sender: FDA-Public Use
  Company Number: US-AMGEN-USASP2011009159

PATIENT
  Age: 50 Year
  Sex: Female

DRUGS (3)
  1. ENBREL [Suspect]
     Indication: PSORIATIC ARTHROPATHY
     Dosage: 50 MG, QWK
     Dates: start: 20030101
  2. HUMIRA [Suspect]
  3. METHOTREXATE [Concomitant]
     Dates: start: 20091201

REACTIONS (9)
  - PARAESTHESIA [None]
  - MULTIPLE SCLEROSIS [None]
  - INJECTION SITE PAIN [None]
  - INJECTION SITE WARMTH [None]
  - MUSCLE SPASMS [None]
  - INJECTION SITE REACTION [None]
  - INJECTION SITE PRURITUS [None]
  - THERAPEUTIC RESPONSE DECREASED [None]
  - INJECTION SITE ERYTHEMA [None]
